FAERS Safety Report 8568171-3 (Version None)
Quarter: 2012Q3

REPORT INFORMATION
  Report Type: 
  Country: None (occurrence: None)
  Receive Date: 20120803
  Receipt Date: 20090425
  Transmission Date: 20120928
  Serious: Yes (Other)
  Sender: FDA-Public Use
  Company Number: CA-009507513-2008-185287-NL

PATIENT

DRUGS (3)
  1. CITALOPRAM HYDROBROMIDE [Concomitant]
     Dosage: UNK DF, UNK
  2. REMERON [Suspect]
     Indication: PRODUCT USED FOR UNKNOWN INDICATION
     Dosage: CONTINUING: NO
     Route: 048
     Dates: start: 20070601, end: 20070601
  3. CITALOPRAM HYDROBROMIDE [Concomitant]
     Dosage: UNK DF, UNK
     Dates: end: 20070601

REACTIONS (2)
  - IMPULSIVE BEHAVIOUR [None]
  - AGGRESSION [None]
